FAERS Safety Report 6892753-8 (Version None)
Quarter: 2010Q3

REPORT INFORMATION
  Report Type: 
  Country: None (occurrence: None)
  Receive Date: 20100731
  Receipt Date: 20081023
  Transmission Date: 20110219
  Serious: No
  Sender: FDA-Public Use
  Company Number: US-PFIZER INC-2008076264

PATIENT
  Sex: Male
  Weight: 79.38 kg

DRUGS (2)
  1. GABAPENTIN [Suspect]
     Indication: PRURITUS
     Dates: start: 20060101
  2. DIOVANE [Concomitant]

REACTIONS (3)
  - BLOOD CHOLESTEROL ABNORMAL [None]
  - DRUG INEFFECTIVE [None]
  - EXPIRED DRUG ADMINISTERED [None]
